FAERS Safety Report 10897630 (Version 1)
Quarter: 2015Q1

REPORT INFORMATION
  Report Type: Spontaneous
  Country: CA (occurrence: None)
  Receive Date: 20150302
  Receipt Date: 20150302
  Transmission Date: 20150721
  Serious: No
  Sender: FDA-Public Use
  Company Number: None

PATIENT
  Age: 72 Year
  Sex: Female
  Weight: 96.16 kg

DRUGS (3)
  1. OMEGA 3 [Concomitant]
     Active Substance: OMEGA-3 FATTY ACIDS
  2. VITAMIN C AND D [Concomitant]
  3. CELEBREX [Suspect]
     Active Substance: CELECOXIB
     Indication: PRODUCT USED FOR UNKNOWN INDICATION
     Dosage: 1 PILL   ONCE DAILY
     Dates: start: 20141201, end: 20150212

REACTIONS (7)
  - Alopecia [None]
  - Eye irritation [None]
  - Palpitations [None]
  - Sleep disorder [None]
  - Flatulence [None]
  - Frequent bowel movements [None]
  - Arthralgia [None]
